FAERS Safety Report 7203852-5 (Version None)
Quarter: 2010Q4

REPORT INFORMATION
  Report Type: 
  Country: None (occurrence: None)
  Receive Date: 20101230
  Receipt Date: 20101221
  Transmission Date: 20110411
  Serious: Yes (Other)
  Sender: FDA-Public Use
  Company Number: CA-JNJFOC-20101207736

PATIENT
  Sex: Female
  Weight: 53 kg

DRUGS (10)
  1. REMICADE [Suspect]
     Indication: RHEUMATOID ARTHRITIS
     Route: 042
  2. PREDNISONE [Concomitant]
     Dosage: 8.5 MG ALTERNATING WITH 10 MG DAILY
  3. METHOTREXATE [Concomitant]
     Route: 058
  4. PLAQUENIL [Concomitant]
  5. FLORINEF [Concomitant]
     Route: 048
  6. FOLIC ACID [Concomitant]
  7. MYOCHRYSINE [Concomitant]
     Route: 030
  8. PARIET [Concomitant]
  9. FOSAMAX [Concomitant]
  10. ALTACE [Concomitant]

REACTIONS (7)
  - ASTHENIA [None]
  - BLOOD POTASSIUM DECREASED [None]
  - BODY TEMPERATURE INCREASED [None]
  - DIARRHOEA [None]
  - NAUSEA [None]
  - SYNCOPE [None]
  - VOMITING [None]
